FAERS Safety Report 14310641 (Version 3)
Quarter: 2018Q2

REPORT INFORMATION
  Report Type: Spontaneous
  Country: US (occurrence: US)
  Receive Date: 20171220
  Receipt Date: 20180515
  Transmission Date: 20180711
  Serious: Yes (Other)
  Sender: FDA-Public Use
  Company Number: US-GLENMARK PHARMACEUTICALS-2017GMK030076

PATIENT

DRUGS (3)
  1. VALACYCLOVIR [Interacting]
     Active Substance: VALACYCLOVIR HYDROCHLORIDE
     Indication: PRODUCT USED FOR UNKNOWN INDICATION
     Dosage: 3 G, OD
     Route: 065
     Dates: start: 20170915, end: 20171215
  2. METHADONE [Concomitant]
     Active Substance: METHADONE HYDROCHLORIDE
     Indication: PAIN
     Dosage: 30 MG, OD
     Route: 048
  3. GABAPENTIN TABLETS [Suspect]
     Active Substance: GABAPENTIN
     Indication: COMPLEX REGIONAL PAIN SYNDROME
     Dosage: UNK UNK, TID (1200 MG MORINNG,900MG AFTERNOON, 900MG BEDTIME)
     Route: 048
     Dates: start: 1993

REACTIONS (7)
  - Drug interaction [Unknown]
  - Product use in unapproved indication [Unknown]
  - Viral infection [Not Recovered/Not Resolved]
  - Parvovirus infection [Not Recovered/Not Resolved]
  - Fatigue [Unknown]
  - Cytomegalovirus infection [Not Recovered/Not Resolved]
  - Epstein-Barr virus infection [Not Recovered/Not Resolved]

NARRATIVE: CASE EVENT DATE: 1993
